FAERS Safety Report 19070005 (Version 1)
Quarter: 2021Q1

REPORT INFORMATION
  Report Type: Spontaneous
  Country: GB (occurrence: GB)
  Receive Date: 20210329
  Receipt Date: 20210329
  Transmission Date: 20210420
  Serious: Yes (Other)
  Sender: FDA-Public Use
  Company Number: GB-ASCEND THERAPEUTICS US, LLC-2108557

PATIENT
  Sex: Female

DRUGS (4)
  1. ESTROGEL [Suspect]
     Active Substance: ESTRADIOL
     Indication: MENOPAUSE
     Route: 065
     Dates: start: 20200709
  2. ESTROGEL [Suspect]
     Active Substance: ESTRADIOL
  3. OESTROGEL (OESTROGEL) (ESTRADIOL) (GEL), UNKNOWN?INDICATION FOR USE: M [Suspect]
     Active Substance: ESTRADIOL
     Route: 065
     Dates: start: 20200709
  4. UTROGESTAN [Concomitant]
     Active Substance: PROGESTERONE
     Route: 065

REACTIONS (4)
  - Insomnia [Recovering/Resolving]
  - Night sweats [Recovering/Resolving]
  - Anxiety [Not Recovered/Not Resolved]
  - Depression [Recovering/Resolving]

NARRATIVE: CASE EVENT DATE: 20200817
